FAERS Safety Report 9689023 (Version 1)
Quarter: 2013Q4

REPORT INFORMATION
  Report Type: Spontaneous
  Country: CA (occurrence: CA)
  Receive Date: 20131114
  Receipt Date: 20131114
  Transmission Date: 20140711
  Serious: Yes (Other)
  Sender: FDA-Public Use
  Company Number: CA-PFIZER INC-2013322507

PATIENT
  Sex: Female

DRUGS (2)
  1. EFFEXOR XR [Suspect]
     Dosage: 150 MG, UNK
  2. EFFEXOR XR [Suspect]
     Dosage: 225 MG, UNK

REACTIONS (14)
  - Drug dependence [Unknown]
  - Food craving [Unknown]
  - Arthralgia [Unknown]
  - Gingival disorder [Unknown]
  - Alcoholism [Unknown]
  - Drug effect decreased [Unknown]
  - Feeling of despair [Unknown]
  - Insomnia [Unknown]
  - Decreased appetite [Unknown]
  - Weight decreased [Unknown]
  - Abdominal distension [Unknown]
  - Foot fracture [Unknown]
  - Emotional disorder [Unknown]
  - Crying [Unknown]
